FAERS Safety Report 7642847-4 (Version None)
Quarter: 2011Q3

REPORT INFORMATION
  Report Type: 
  Country: None (occurrence: None)
  Receive Date: 20110728
  Receipt Date: 20110726
  Transmission Date: 20111222
  Serious: Yes (Death, Life-Threatening, Hospitalization, Other)
  Sender: FDA-Public Use
  Company Number: US-B.I. PHARMACEUTICALS,INC./RIDGEFIELD-2011-BP-10200BP

PATIENT
  Sex: Female
  Weight: 151 kg

DRUGS (10)
  1. AMIODARONE HCL [Concomitant]
     Dosage: 200 MG
  2. LOPRESSOR [Concomitant]
     Indication: HYPERTENSION
  3. LASIX [Concomitant]
     Indication: CARDIAC FAILURE CONGESTIVE
     Dosage: 40 MG
  4. PRADAXA [Suspect]
     Indication: ATRIAL FIBRILLATION
     Dosage: 300 MG
     Route: 048
     Dates: end: 20110405
  5. CRESTOR [Concomitant]
     Indication: BLOOD CHOLESTEROL INCREASED
     Dosage: 20 MG
  6. SYNTHROID [Concomitant]
     Indication: HYPOTHYROIDISM
     Dosage: 25 MCG
  7. ZETIA [Concomitant]
     Dosage: 10 MG
     Route: 048
  8. PRINIVIL [Concomitant]
     Dosage: 40 MG
  9. ASPIRIN [Concomitant]
     Dosage: 81 MG
  10. TOPROL-XL [Concomitant]
     Dosage: 75 MG

REACTIONS (14)
  - INTESTINAL ISCHAEMIA [None]
  - INTERNATIONAL NORMALISED RATIO INCREASED [None]
  - RENAL FAILURE ACUTE [None]
  - PNEUMONIA [None]
  - ABDOMINAL PAIN [None]
  - SHOCK [None]
  - EPISTAXIS [None]
  - MOUTH HAEMORRHAGE [None]
  - TOXICITY TO VARIOUS AGENTS [None]
  - RESPIRATORY FAILURE [None]
  - COAGULOPATHY [None]
  - RENAL TUBULAR NECROSIS [None]
  - RENAL FAILURE [None]
  - SEPSIS [None]
